FAERS Safety Report 24924487 (Version 2)
Quarter: 2025Q1

REPORT INFORMATION
  Report Type: Spontaneous
  Country: US (occurrence: US)
  Receive Date: 20250204
  Receipt Date: 20250217
  Transmission Date: 20250409
  Serious: Yes (Hospitalization)
  Sender: JOHNSON AND JOHNSON
  Company Number: US-JNJFOC-20250173955

PATIENT
  Age: 71 Year
  Sex: Female

DRUGS (23)
  1. OPSUMIT [Suspect]
     Active Substance: MACITENTAN
     Indication: Product used for unknown indication
     Route: 048
     Dates: end: 2024
  2. REMODULIN [Suspect]
     Active Substance: TREPROSTINIL
     Indication: Pulmonary arterial hypertension
     Route: 042
     Dates: start: 202407
  3. REMODULIN [Suspect]
     Active Substance: TREPROSTINIL
     Route: 042
     Dates: start: 202407
  4. REMODULIN [Suspect]
     Active Substance: TREPROSTINIL
     Route: 042
     Dates: start: 2024
  5. REMODULIN [Suspect]
     Active Substance: TREPROSTINIL
     Route: 042
     Dates: start: 2024
  6. REMODULIN [Suspect]
     Active Substance: TREPROSTINIL
     Route: 042
     Dates: start: 2024
  7. REMODULIN [Suspect]
     Active Substance: TREPROSTINIL
     Route: 042
     Dates: start: 20240702, end: 20240920
  8. TYLENOL [Concomitant]
     Active Substance: ACETAMINOPHEN
  9. PREDNISONE [Concomitant]
     Active Substance: PREDNISONE
  10. OXYCODONE HYDROCHLORIDE [Concomitant]
     Active Substance: OXYCODONE HYDROCHLORIDE
  11. ELIQUIS [Concomitant]
     Active Substance: APIXABAN
  12. SODIUM CHLORIDE [Concomitant]
     Active Substance: SODIUM CHLORIDE
  13. KEPPRA [Concomitant]
     Active Substance: LEVETIRACETAM
  14. FUROSEMIDE [Concomitant]
     Active Substance: FUROSEMIDE
  15. SILDENAFIL [Concomitant]
     Active Substance: SILDENAFIL
  16. OXYGENE GAZEUX IJSFABRIEK STROMB. [Concomitant]
  17. BUMETANIDE [Concomitant]
     Active Substance: BUMETANIDE
  18. EPLERENONE [Concomitant]
     Active Substance: EPLERENONE
  19. ARMOUR THYROID [Concomitant]
     Active Substance: THYROID, PORCINE
  20. MIDODRINE HYDROCHLORIDE [Concomitant]
     Active Substance: MIDODRINE HYDROCHLORIDE
  21. ONDANSETRON HYDROCHLORIDE [Concomitant]
     Active Substance: ONDANSETRON HYDROCHLORIDE
  22. OXYCODONE AND ACETAMINOPHEN [Concomitant]
     Active Substance: ACETAMINOPHEN\OXYCODONE HYDROCHLORIDE
  23. POTASSIUM [Concomitant]
     Active Substance: POTASSIUM

REACTIONS (16)
  - Cardiac failure [Unknown]
  - Hospitalisation [Unknown]
  - Depression [Recovered/Resolved]
  - General physical health deterioration [Unknown]
  - Headache [Recovered/Resolved]
  - Vomiting [Recovered/Resolved]
  - Hypotension [Unknown]
  - Arthralgia [Unknown]
  - Pain in jaw [Unknown]
  - Tremor [Unknown]
  - Constipation [Recovered/Resolved]
  - Fatigue [Recovered/Resolved]
  - Hypersomnia [Recovered/Resolved]
  - Dizziness postural [Unknown]
  - Drug ineffective [Unknown]
  - Nausea [Unknown]

NARRATIVE: CASE EVENT DATE: 20240101
